FAERS Safety Report 7519670-4 (Version None)
Quarter: 2011Q2

REPORT INFORMATION
  Report Type: 
  Country: None (occurrence: None)
  Receive Date: 20110602
  Receipt Date: 20110531
  Transmission Date: 20111010
  Serious: Yes (Hospitalization)
  Sender: FDA-Public Use
  Company Number: D0071470A

PATIENT
  Sex: Male

DRUGS (12)
  1. STALEVO 100 [Suspect]
  2. REQUIP [Suspect]
     Indication: PARKINSON'S DISEASE
     Dosage: 12MG PER DAY
  3. ASPIRIN [Suspect]
  4. AMANTADINE HCL [Concomitant]
     Route: 065
  5. DOMPERIDON [Suspect]
  6. NITROFURANTOIN [Suspect]
  7. SEROQUEL [Suspect]
     Dosage: 50MG PER DAY
  8. OMEPRAZOLE [Suspect]
  9. AMOXICILLIN AND CLAVULANATE POTASSIUM [Suspect]
  10. EXELON [Concomitant]
     Route: 062
  11. MADOPAR [Suspect]
  12. MADOPAR DEPOT [Suspect]

REACTIONS (5)
  - LETHARGY [None]
  - HOSPITALISATION [None]
  - GENERAL PHYSICAL HEALTH DETERIORATION [None]
  - DYSPHAGIA [None]
  - DRUG ADMINISTRATION ERROR [None]
